FAERS Safety Report 7785874-9 (Version None)
Quarter: 2011Q3

REPORT INFORMATION
  Report Type: 
  Country: None (occurrence: None)
  Receive Date: 20110929
  Receipt Date: 20110927
  Transmission Date: 20111222
  Serious: Yes (Death)
  Sender: FDA-Public Use
  Company Number: US-BAYER-201036581NA

PATIENT
  Age: 68 Year
  Sex: Male

DRUGS (4)
  1. AMLODIPINE BESYLATE AND BENAZEPRIL HYDROCHLORIDE [Concomitant]
     Dosage: 10-20 MG
  2. NEXAVAR [Suspect]
     Indication: COLON CANCER
     Route: 048
     Dates: start: 20100929
  3. FISH OIL [Concomitant]
     Dosage: 1200 MG, UNK
  4. ASPIRIN [Concomitant]
     Dosage: 81 MG, UNK

REACTIONS (7)
  - DYSPNOEA [None]
  - DYSPHONIA [None]
  - DYSGEUSIA [None]
  - NAUSEA [None]
  - ABDOMINAL PAIN UPPER [None]
  - DEATH [None]
  - DIARRHOEA [None]
